FAERS Safety Report 7813541-1 (Version None)
Quarter: 2011Q4

REPORT INFORMATION
  Report Type: 
  Country: None (occurrence: None)
  Receive Date: 20111014
  Receipt Date: 20111006
  Transmission Date: 20120403
  Serious: No
  Sender: FDA-Public Use
  Company Number: US-BIOGENIDEC-2011BI038465

PATIENT
  Age: 46 Year
  Sex: Female

DRUGS (3)
  1. TYSABRI [Suspect]
     Indication: MULTIPLE SCLEROSIS
     Route: 042
     Dates: start: 20110729
  2. AVONEX [Concomitant]
     Indication: MULTIPLE SCLEROSIS
     Route: 030
     Dates: start: 20061020
  3. TYSABRI [Suspect]
     Route: 042
     Dates: start: 20050125

REACTIONS (11)
  - ABDOMINAL DISCOMFORT [None]
  - DEPRESSED MOOD [None]
  - STRESS [None]
  - TEMPERATURE INTOLERANCE [None]
  - GENERAL SYMPTOM [None]
  - HYPOAESTHESIA [None]
  - ADJUSTMENT DISORDER [None]
  - HYPERHIDROSIS [None]
  - FEELING ABNORMAL [None]
  - MULTIPLE ALLERGIES [None]
  - DEPRESSION [None]
